FAERS Safety Report 16773537 (Version 1)
Quarter: 2019Q3

REPORT INFORMATION
  Report Type: Report from Study
  Country: US (occurrence: US)
  Receive Date: 20190904
  Receipt Date: 20190904
  Transmission Date: 20191005
  Serious: Yes (Hospitalization)
  Sender: FDA-Public Use
  Company Number: US-SHIRE-US201928155

PATIENT
  Sex: Female

DRUGS (1)
  1. PARATHYROID HORMONE [Suspect]
     Active Substance: PARATHYROID HORMONE
     Indication: PRODUCT USED FOR UNKNOWN INDICATION
     Dosage: UNK UNK, 1X/DAY:QD
     Route: 058

REACTIONS (2)
  - Hospitalisation [Unknown]
  - Hot flush [Not Recovered/Not Resolved]
